FAERS Safety Report 16426686 (Version 1)
Quarter: 2019Q2

REPORT INFORMATION
  Report Type: Spontaneous
  Country: US (occurrence: US)
  Receive Date: 20190613
  Receipt Date: 20190613
  Transmission Date: 20190711
  Serious: No
  Sender: FDA-Public Use
  Company Number: US-TEVA-2019-US-1061364

PATIENT
  Age: 50 Year
  Sex: Female

DRUGS (1)
  1. FAMOTIDINE. [Suspect]
     Active Substance: FAMOTIDINE
     Indication: METABOLIC ALKALOSIS
     Route: 065

REACTIONS (1)
  - Drug ineffective [Unknown]
